FAERS Safety Report 5671708-5 (Version None)
Quarter: 2008Q1

REPORT INFORMATION
  Report Type: 
  Country: None (occurrence: None)
  Receive Date: 20080314
  Receipt Date: 20080305
  Transmission Date: 20080703
  Serious: Yes (Hospitalization)
  Sender: FDA-Public Use
  Company Number: 163-20785-08030289

PATIENT
  Age: 56 Year
  Sex: Male

DRUGS (4)
  1. THALOMID [Suspect]
     Indication: ERYTHEMA NODOSUM
     Dosage: 200 MG, 1 IN 1 D, ORAL : 200 MG, 2 IN 1 D, ORAL : 200 MG, 1 IN 1 D, ORAL : 200 MG, 1 IN 1 D, ORAL
     Route: 048
     Dates: start: 20040616, end: 20060301
  2. THALOMID [Suspect]
     Indication: ERYTHEMA NODOSUM
     Dosage: 200 MG, 1 IN 1 D, ORAL : 200 MG, 2 IN 1 D, ORAL : 200 MG, 1 IN 1 D, ORAL : 200 MG, 1 IN 1 D, ORAL
     Route: 048
     Dates: start: 20060428, end: 20070601
  3. THALOMID [Suspect]
     Indication: ERYTHEMA NODOSUM
     Dosage: 200 MG, 1 IN 1 D, ORAL : 200 MG, 2 IN 1 D, ORAL : 200 MG, 1 IN 1 D, ORAL : 200 MG, 1 IN 1 D, ORAL
     Route: 048
     Dates: start: 20070601, end: 20071201
  4. THALOMID [Suspect]
     Indication: ERYTHEMA NODOSUM
     Dosage: 200 MG, 1 IN 1 D, ORAL : 200 MG, 2 IN 1 D, ORAL : 200 MG, 1 IN 1 D, ORAL : 200 MG, 1 IN 1 D, ORAL
     Route: 048
     Dates: start: 20080206

REACTIONS (2)
  - DISEASE RECURRENCE [None]
  - TIBIA FRACTURE [None]
